FAERS Safety Report 4996887-4 (Version None)
Quarter: 2006Q2

REPORT INFORMATION
  Report Type: 
  Country: None (occurrence: None)
  Receive Date: 20060509
  Receipt Date: 20060413
  Transmission Date: 20061013
  Serious: Yes (Disabling, Other)
  Sender: FDA-Public Use
  Company Number: US-GLAXOSMITHKLINE-A0601663A

PATIENT
  Age: 57 Year
  Sex: Female
  Weight: 101.4 kg

DRUGS (5)
  1. AVANDAMET [Suspect]
     Indication: DIABETES MELLITUS
     Route: 048
     Dates: end: 20060320
  2. AMARYL [Concomitant]
     Dosage: 2MG TWICE PER DAY
     Route: 048
  3. ATACAND [Concomitant]
     Dosage: 32MG PER DAY
     Route: 048
  4. ZYRTEC [Concomitant]
     Dosage: 10MG PER DAY
     Route: 048
  5. NEXIUM [Concomitant]
     Dosage: 40MG PER DAY
     Route: 048

REACTIONS (2)
  - MACULAR OEDEMA [None]
  - RETINOPATHY [None]
